FAERS Safety Report 5365532-0 (Version None)
Quarter: 2007Q2

REPORT INFORMATION
  Report Type: 
  Country: None (occurrence: None)
  Receive Date: 20070621
  Receipt Date: 20070619
  Transmission Date: 20071010
  Serious: Yes (Hospitalization)
  Sender: FDA-Public Use
  Company Number: A0658267A

PATIENT
  Age: 75 Year
  Sex: Female

DRUGS (9)
  1. AVANDIA [Suspect]
     Dosage: 8MG TWICE PER DAY
     Route: 048
     Dates: start: 20000101, end: 20070605
  2. GLIPIZIDE [Concomitant]
  3. LASIX [Concomitant]
  4. ZOCOR [Concomitant]
  5. BUMEX [Concomitant]
  6. METOLAZONE [Concomitant]
  7. WARFARIN SODIUM [Concomitant]
  8. IRON SUPPLEMENTS [Concomitant]
  9. VITAMIN CAP [Concomitant]

REACTIONS (6)
  - ANAEMIA [None]
  - DYSPNOEA [None]
  - FLUID RETENTION [None]
  - OEDEMA PERIPHERAL [None]
  - PULMONARY EMBOLISM [None]
  - RENAL IMPAIRMENT [None]
